FAERS Safety Report 12203309 (Version 1)
Quarter: 2016Q1

REPORT INFORMATION
  Report Type: Spontaneous
  Country: US (occurrence: None)
  Receive Date: 20160321
  Receipt Date: 20160321
  Transmission Date: 20160526
  Serious: Yes (Hospitalization)
  Sender: FDA-Public Use
  Company Number: None

PATIENT
  Age: 87 Year
  Sex: Female

DRUGS (5)
  1. CEFUROXIME 250 MG [Suspect]
     Active Substance: CEFUROXIME SODIUM
     Dates: start: 20150221, end: 20150227
  2. OMEPRAZOLE 40 MG [Suspect]
     Active Substance: OMEPRAZOLE
     Route: 048
  3. DAPTOMYCIN. [Suspect]
     Active Substance: DAPTOMYCIN
     Dates: start: 20141213, end: 20141223
  4. CIPROFLOXACIN 250 MG [Suspect]
     Active Substance: CIPROFLOXACIN
     Dates: start: 20150121, end: 20150127
  5. PANTOPRAZOLE 40 MG [Suspect]
     Active Substance: PANTOPRAZOLE SODIUM
     Route: 048

REACTIONS (4)
  - Septic shock [None]
  - Hypotension [None]
  - Acute kidney injury [None]
  - Clostridium test positive [None]

NARRATIVE: CASE EVENT DATE: 20150326
